FAERS Safety Report 23466297 (Version 1)
Quarter: 2024Q1

REPORT INFORMATION
  Report Type: Spontaneous
  Country: US (occurrence: US)
  Receive Date: 20240201
  Receipt Date: 20240201
  Transmission Date: 20240410
  Serious: No
  Sender: FDA-Public Use
  Company Number: US-PFIZER INC-PV202400013836

PATIENT
  Age: 42 Year
  Sex: Male

DRUGS (2)
  1. INLYTA [Suspect]
     Active Substance: AXITINIB
     Indication: Adrenal gland cancer
     Dosage: UNK
     Dates: start: 202401
  2. INLYTA [Suspect]
     Active Substance: AXITINIB
     Indication: Phaeochromocytoma

REACTIONS (2)
  - Fatigue [Recovered/Resolved]
  - Off label use [Unknown]
